FAERS Safety Report 6544307-0 (Version None)
Quarter: 2010Q1

REPORT INFORMATION
  Report Type: 
  Country: None (occurrence: None)
  Receive Date: 20100120
  Receipt Date: 20100120
  Transmission Date: 20100710
  Serious: Yes (Life-Threatening, Disabling, Other)
  Sender: FDA-Public Use
  Company Number: None

PATIENT
  Age: 39 Year
  Sex: Female
  Weight: 58.9676 kg

DRUGS (2)
  1. HALDOL [Suspect]
     Indication: MIGRAINE
     Dosage: UNKNOWN 1 TIME PO, 1 DOSE
     Route: 048
     Dates: start: 19940111, end: 19940111
  2. HALDOL [Suspect]
     Indication: WRONG DRUG ADMINISTERED
     Dosage: UNKNOWN 1 TIME PO, 1 DOSE
     Route: 048
     Dates: start: 19940111, end: 19940111

REACTIONS (3)
  - MUSCLE SPASMS [None]
  - VICTIM OF SPOUSAL ABUSE [None]
  - WRONG DRUG ADMINISTERED [None]
